FAERS Safety Report 25835137 (Version 2)
Quarter: 2025Q4

REPORT INFORMATION
  Report Type: Spontaneous
  Country: EU (occurrence: EU)
  Receive Date: 20250923
  Receipt Date: 20251013
  Transmission Date: 20260118
  Serious: Yes (Hospitalization, Other)
  Sender: TEVA
  Company Number: EU-TEVA-VS-3373790

PATIENT
  Age: 37 Year
  Sex: Female

DRUGS (5)
  1. DOXORUBICIN [Suspect]
     Active Substance: DOXORUBICIN
     Indication: Chondrosarcoma
     Route: 042
  2. MESNA [Concomitant]
     Active Substance: MESNA
     Indication: Drug therapy
     Route: 042
  3. PAZOPANIB [Suspect]
     Active Substance: PAZOPANIB
     Indication: Chondrosarcoma
     Route: 048
  4. IFOSFAMIDE [Suspect]
     Active Substance: IFOSFAMIDE
     Indication: Chondrosarcoma
     Route: 042
  5. TRABECTEDIN [Suspect]
     Active Substance: TRABECTEDIN
     Indication: Chondrosarcoma
     Route: 042

REACTIONS (3)
  - Recall phenomenon [Recovered/Resolved]
  - Drug ineffective [Unknown]
  - Myositis [Recovered/Resolved]
